FAERS Safety Report 7615826-0 (Version None)
Quarter: 2011Q3

REPORT INFORMATION
  Report Type: 
  Country: None (occurrence: None)
  Receive Date: 20110711
  Receipt Date: 20110208
  Transmission Date: 20111222
  Serious: Yes (Death, Hospitalization)
  Sender: FDA-Public Use
  Company Number: IDR-00456

PATIENT
  Age: 46 Year
  Sex: Male

DRUGS (5)
  1. CALCICHEW-D3 (CALCIUM CARBONATE, COLECALCIFEROL) [Concomitant]
  2. INDERAL [Suspect]
     Indication: PALPITATIONS
     Dosage: 80 MG DAILY, ORAL FORMULATION: CAPSULE CONTR REL
     Route: 048
     Dates: start: 20090701, end: 20100601
  3. INDERAL [Suspect]
     Indication: ESSENTIAL TREMOR
     Dosage: 80 MG DAILY, ORAL FORMULATION: CAPSULE CONTR REL
     Route: 048
     Dates: start: 20090701, end: 20100601
  4. PREDNISOLONE [Concomitant]
  5. VIAGRA [Concomitant]

REACTIONS (6)
  - HEART RATE INCREASED [None]
  - CANDIDA TEST POSITIVE [None]
  - BRONCHOALVEOLAR LAVAGE ABNORMAL [None]
  - PULMONARY FIBROSIS [None]
  - STAPHYLOCOCCUS TEST POSITIVE [None]
  - BRONCHIECTASIS [None]
